FAERS Safety Report 8379134-5 (Version None)
Quarter: 2012Q2

REPORT INFORMATION
  Report Type: 
  Country: None (occurrence: None)
  Receive Date: 20120523
  Receipt Date: 20110505
  Transmission Date: 20120825
  Serious: Yes (Hospitalization, Disabling, Other)
  Sender: FDA-Public Use
  Company Number: 163-21880-11032146

PATIENT
  Age: 62 Year
  Sex: Female

DRUGS (33)
  1. VITAMIN B12 [Concomitant]
  2. NEURONTIN [Concomitant]
  3. NORCO [Concomitant]
  4. DULCOLAX [Concomitant]
  5. ASPIRIN [Concomitant]
  6. LANTUS [Concomitant]
  7. THERAGRAN (THERAGRAN) [Concomitant]
  8. DEXTROSE 5% [Concomitant]
  9. CALCIUM + VITAMIN D (CALCIUM D3 ^STADA^) [Concomitant]
  10. PLAVIX [Concomitant]
  11. FOLIC ACID [Concomitant]
  12. METOPROLOL TARTRATE [Concomitant]
  13. DECADRON [Concomitant]
  14. COLACE (DOCUSATE SODIUM) [Concomitant]
  15. PROVENTIL [Concomitant]
  16. HYDROCHLOROTHIAIZDE (HYDROCHLOROTHIAZIDE) [Concomitant]
  17. NORVASC [Concomitant]
  18. REVLIMID [Suspect]
     Indication: MULTIPLE MYELOMA
     Dosage: 7.5 MG, 1 IN 2 D, PO
     Route: 048
     Dates: start: 20110211, end: 20110228
  19. LEVAQUIN [Concomitant]
  20. MULTIVITAMIN [Concomitant]
  21. VELCADE [Suspect]
     Indication: MULTIPLE MYELOMA
     Dosage: 2.7 MG, TWICE A WEEK, IV
     Route: 042
     Dates: start: 20110211, end: 20110225
  22. HEPARIN [Concomitant]
  23. NOVOLOG [Concomitant]
  24. FLUID (I.V. SOLUTIONS) [Concomitant]
  25. LISINOPRIL [Concomitant]
  26. CRESTOR [Concomitant]
  27. TOPROL-XL [Concomitant]
  28. PROTONIX [Concomitant]
  29. ACETAMINOPHEN [Concomitant]
  30. PAXIL [Concomitant]
  31. ZOFRAN [Concomitant]
  32. CIMETIDINE [Concomitant]
  33. PAROXETINE HCL [Concomitant]

REACTIONS (6)
  - PANCYTOPENIA [None]
  - SYNCOPE [None]
  - CONDITION AGGRAVATED [None]
  - PNEUMONIA [None]
  - NEUROPATHY PERIPHERAL [None]
  - RENAL FAILURE ACUTE [None]
